FAERS Safety Report 15208466 (Version 1)
Quarter: 2018Q4

REPORT INFORMATION
  Report Type: Spontaneous
  Country: DE (occurrence: DE)
  Receive Date: 20180727
  Receipt Date: 20180727
  Transmission Date: 20190204
  Serious: Yes (Hospitalization)
  Sender: FDA-Public Use
  Company Number: DE-HIKMA PHARMACEUTICALS USA INC.-DE-H14001-18-06088

PATIENT
  Age: 71 Year
  Sex: Female
  Weight: 60 kg

DRUGS (55)
  1. FOLINIC ACID [Suspect]
     Active Substance: LEUCOVORIN
     Route: 042
  2. 5-FU [Suspect]
     Active Substance: FLUOROURACIL
     Route: 041
  3. AVASTIN [Suspect]
     Active Substance: BEVACIZUMAB
     Dosage: DAILY DOSE: 300 MG MILLGRAM(S) EVERY 2 WEEKS
     Route: 042
     Dates: start: 20130528, end: 20130528
  4. FOLINIC ACID [Suspect]
     Active Substance: LEUCOVORIN
     Route: 042
  5. IRINOTECAN [Suspect]
     Active Substance: IRINOTECAN
     Dosage: DAILY DOSE: 280 MG MILLGRAM(S) EVERY 2 WEEKS
     Route: 042
     Dates: start: 20130430
  6. IRINOTECAN [Suspect]
     Active Substance: IRINOTECAN
     Route: 042
  7. IRINOTECAN [Suspect]
     Active Substance: IRINOTECAN
     Route: 042
  8. 5-FU [Suspect]
     Active Substance: FLUOROURACIL
     Indication: BREAST CANCER
     Route: 040
     Dates: start: 20130716, end: 20130718
  9. 5-FU [Suspect]
     Active Substance: FLUOROURACIL
     Route: 041
  10. 5-FU [Suspect]
     Active Substance: FLUOROURACIL
     Route: 040
     Dates: start: 20130514, end: 20130516
  11. METOHEXAL (GERMANY) [Concomitant]
     Indication: PRODUCT USED FOR UNKNOWN INDICATION
     Dosage: DAILY DOSE: 95 MG MILLGRAM(S) EVERY DAYS
     Route: 048
  12. IRINOTECAN [Suspect]
     Active Substance: IRINOTECAN
     Route: 042
  13. IRINOTECAN [Suspect]
     Active Substance: IRINOTECAN
     Route: 042
  14. 5-FU [Suspect]
     Active Substance: FLUOROURACIL
     Route: 040
     Dates: start: 20131015, end: 20131017
  15. 5-FU [Suspect]
     Active Substance: FLUOROURACIL
     Route: 040
     Dates: start: 20131203, end: 20131205
  16. 5-FU [Suspect]
     Active Substance: FLUOROURACIL
     Route: 040
     Dates: start: 20130430, end: 20130502
  17. 5-FU [Suspect]
     Active Substance: FLUOROURACIL
     Route: 040
     Dates: start: 20140619, end: 20140621
  18. 5-FU [Suspect]
     Active Substance: FLUOROURACIL
     Route: 041
  19. AVASTIN [Suspect]
     Active Substance: BEVACIZUMAB
     Dosage: DAILY DOSE: 300 MG MILLGRAM(S) EVERY 2 WEEKS
     Route: 042
     Dates: start: 20140114, end: 20140114
  20. FOLINIC ACID [Suspect]
     Active Substance: LEUCOVORIN
     Route: 042
  21. FOLINIC ACID [Suspect]
     Active Substance: LEUCOVORIN
     Route: 042
  22. IRINOTECAN [Suspect]
     Active Substance: IRINOTECAN
     Route: 042
  23. IRINOTECAN [Suspect]
     Active Substance: IRINOTECAN
     Route: 042
  24. 5-FU [Suspect]
     Active Substance: FLUOROURACIL
     Route: 041
  25. 5-FU [Suspect]
     Active Substance: FLUOROURACIL
     Route: 041
  26. AVASTIN [Suspect]
     Active Substance: BEVACIZUMAB
     Dosage: DAILY DOSE: 300 MG MILLGRAM(S) EVERY 2 WEEKS
     Route: 042
     Dates: start: 20130430, end: 20130430
  27. IRINOTECAN [Suspect]
     Active Substance: IRINOTECAN
     Route: 042
  28. 5-FU [Suspect]
     Active Substance: FLUOROURACIL
     Route: 041
  29. 5-FU [Suspect]
     Active Substance: FLUOROURACIL
     Route: 040
     Dates: start: 20130528, end: 20130530
  30. 5-FU [Suspect]
     Active Substance: FLUOROURACIL
     Route: 041
  31. FOLINIC ACID [Suspect]
     Active Substance: LEUCOVORIN
     Route: 042
  32. FOLINIC ACID [Suspect]
     Active Substance: LEUCOVORIN
     Dosage: DAILY DOSE: 640 MG MILLGRAM(S) EVERY 2 WEEKS
     Route: 042
     Dates: start: 20130430
  33. IRINOTECAN [Suspect]
     Active Substance: IRINOTECAN
     Indication: BREAST CANCER
     Route: 042
  34. IRINOTECAN [Suspect]
     Active Substance: IRINOTECAN
     Route: 042
  35. 5-FU [Suspect]
     Active Substance: FLUOROURACIL
     Route: 040
     Dates: start: 20130702, end: 20130704
  36. 5-FU [Suspect]
     Active Substance: FLUOROURACIL
     Route: 040
     Dates: start: 20140114, end: 20140116
  37. FOLINIC ACID [Suspect]
     Active Substance: LEUCOVORIN
     Indication: BREAST CANCER
     Route: 042
  38. FOLINIC ACID [Suspect]
     Active Substance: LEUCOVORIN
     Route: 042
  39. FOLINIC ACID [Suspect]
     Active Substance: LEUCOVORIN
     Route: 042
  40. FOLINIC ACID [Suspect]
     Active Substance: LEUCOVORIN
     Route: 042
  41. FOLINIC ACID [Suspect]
     Active Substance: LEUCOVORIN
     Route: 042
  42. IRINOTECAN [Suspect]
     Active Substance: IRINOTECAN
     Route: 042
  43. IRINOTECAN [Suspect]
     Active Substance: IRINOTECAN
     Route: 042
  44. 5-FU [Suspect]
     Active Substance: FLUOROURACIL
     Route: 041
  45. 5-FU [Suspect]
     Active Substance: FLUOROURACIL
     Route: 040
     Dates: start: 20130903, end: 20130905
  46. 5-FU [Suspect]
     Active Substance: FLUOROURACIL
     Route: 041
  47. 5-FU [Suspect]
     Active Substance: FLUOROURACIL
     Route: 041
  48. 5-FU [Suspect]
     Active Substance: FLUOROURACIL
     Route: 041
  49. 5-FU [Suspect]
     Active Substance: FLUOROURACIL
     Dosage: DAILY DOSE: 4500 MG MILLGRAM(S) EVERY 2 WEEKS
     Route: 041
     Dates: start: 20130430
  50. FOLINIC ACID [Suspect]
     Active Substance: LEUCOVORIN
     Route: 042
  51. 5-FU [Suspect]
     Active Substance: FLUOROURACIL
     Route: 040
     Dates: start: 20140805, end: 20140807
  52. 5-FU [Suspect]
     Active Substance: FLUOROURACIL
     Route: 040
     Dates: start: 20130820, end: 20130822
  53. AVASTIN [Suspect]
     Active Substance: BEVACIZUMAB
     Indication: BREAST CANCER
     Dosage: DAILY DOSE: 300 MG MILLGRAM(S) EVERY 2 WEEKS
     Route: 042
     Dates: start: 20131203, end: 20131203
  54. MCP DROPS [Concomitant]
     Indication: VOMITING
     Dosage: DAILY DOSE: 90 GTT DROP(S) EVERY DAYS
     Route: 048
  55. PANTOPRAZOL [Concomitant]
     Active Substance: PANTOPRAZOLE SODIUM
     Indication: ULCER
     Dosage: DAILY DOSE: 80 MG MILLGRAM(S) EVERY DAYS
     Route: 048

REACTIONS (6)
  - Anaemia [Recovered/Resolved]
  - Gastrointestinal haemorrhage [Recovered/Resolved]
  - Cholelithiasis [Recovered/Resolved]
  - Abdominal pain [Not Recovered/Not Resolved]
  - Cholangitis [Recovered/Resolved]
  - Abdominal pain upper [Recovered/Resolved]

NARRATIVE: CASE EVENT DATE: 20130430
